FAERS Safety Report 13003215 (Version 1)
Quarter: 2016Q4

REPORT INFORMATION
  Report Type: Spontaneous
  Country: US (occurrence: US)
  Receive Date: 20161206
  Receipt Date: 20161206
  Transmission Date: 20170207
  Serious: No
  Sender: FDA-Public Use
  Company Number: US-AMNEAL PHARMACEUTICALS-2016AMN00700

PATIENT
  Sex: Female

DRUGS (1)
  1. OMEGA-3-ACID ETHYL ESTERS. [Suspect]
     Active Substance: OMEGA-3-ACID ETHYL ESTERS

REACTIONS (5)
  - Product odour abnormal [Unknown]
  - Eructation [Unknown]
  - Diarrhoea [Unknown]
  - Nausea [Unknown]
  - Product taste abnormal [Unknown]
